FAERS Safety Report 9697319 (Version 1)
Quarter: 2013Q4

REPORT INFORMATION
  Report Type: Spontaneous
  Country: US (occurrence: None)
  Receive Date: 20131119
  Receipt Date: 20131119
  Transmission Date: 20140711
  Serious: Yes (Hospitalization)
  Sender: FDA-Public Use
  Company Number: None

PATIENT
  Age: 31 Year
  Sex: Female
  Weight: 50.9 kg

DRUGS (3)
  1. CLARAVIS [Suspect]
     Indication: ORAL CONTRACEPTION
     Route: 048
  2. YAZ [Suspect]
  3. CELEXA [Concomitant]

REACTIONS (3)
  - Cerebrovascular accident [None]
  - Ataxia [None]
  - Hemianopia [None]
